FAERS Safety Report 22150330 (Version 6)
Quarter: 2024Q3

REPORT INFORMATION
  Report Type: Spontaneous
  Country: FR (occurrence: FR)
  Receive Date: 20230329
  Receipt Date: 20240817
  Transmission Date: 20241016
  Serious: Yes (Death, Life-Threatening, Other)
  Sender: AMGEN
  Company Number: FR-AMGEN-FRASP2023050058

PATIENT

DRUGS (5)
  1. CARFILZOMIB [Suspect]
     Active Substance: CARFILZOMIB
     Indication: Plasma cell myeloma refractory
     Dosage: UNK (20 MG/M2 ON DAYS 1 AND 2 OF THE FIRST CYCLE)
     Route: 042
  2. CARFILZOMIB [Suspect]
     Active Substance: CARFILZOMIB
     Dosage: UNK (56 MG/M2 ON DAYS 8, 9, 15, AND 16 OF THE FIRST CYCLE)
     Route: 042
  3. CARFILZOMIB [Suspect]
     Active Substance: CARFILZOMIB
     Dosage: UNK (DAYS 1, 2, 8, 9, 15, AND 16 OF SUBSEQUENT CYCLES.)
     Route: 042
  4. DEXAMETHASONE [Suspect]
     Active Substance: DEXAMETHASONE
     Indication: Plasma cell myeloma refractory
     Dosage: 20 MILLIGRAM (20 MG WAS ADMINISTERED INTRAVENOUSLY OR ORALLY ON DAYS 1, 2, 8, 9, 15, 16, 22, AND 23.
     Route: 065
  5. ISATUXIMAB [Suspect]
     Active Substance: ISATUXIMAB
     Indication: Plasma cell myeloma refractory
     Dosage: 10 MILLIGRAM/KILOGRAM (10 MG/KG INTRAVENOUSLY ON DAYS 1, 8, 15, AND 22 OF THE FIRST CYCLE, AND ON DA
     Route: 042

REACTIONS (75)
  - Death [Fatal]
  - Cardiac failure [Fatal]
  - Pneumonia [Fatal]
  - COVID-19 [Fatal]
  - COVID-19 pneumonia [Unknown]
  - Atypical pneumonia [Fatal]
  - Acute kidney injury [Fatal]
  - Asthma [Fatal]
  - Acute myocardial infarction [Fatal]
  - Plasma cell myeloma [Fatal]
  - Large intestine perforation [Fatal]
  - Septic shock [Fatal]
  - Pneumocystis jirovecii pneumonia [Fatal]
  - Second primary malignancy [Fatal]
  - Pancreatic carcinoma metastatic [Fatal]
  - Uterine cancer [Fatal]
  - Lung neoplasm malignant [Fatal]
  - Multiple injuries [Fatal]
  - Acute myeloid leukaemia [Fatal]
  - Neutropenia [Unknown]
  - Embolism venous [Unknown]
  - Respiratory tract infection [Unknown]
  - Embolism arterial [Unknown]
  - Neoplasm [Unknown]
  - Pathological fracture [Unknown]
  - Hyperglycaemia [Unknown]
  - Hypertension [Unknown]
  - Osteoarthritis [Unknown]
  - Skin cancer [Unknown]
  - Gastroenteritis [Unknown]
  - Urinary tract infection [Unknown]
  - Diabetes mellitus [Unknown]
  - Bacterial sepsis [Unknown]
  - Alanine aminotransferase increased [Unknown]
  - Sepsis [Unknown]
  - Anaemia [Unknown]
  - Thrombocytopenia [Unknown]
  - Upper respiratory tract infection [Unknown]
  - Hypercalcaemia [Unknown]
  - Duodenal ulcer haemorrhage [Unknown]
  - Abdominal abscess [Unknown]
  - Abdominal sepsis [Unknown]
  - Hypertensive crisis [Unknown]
  - Lipase increased [Unknown]
  - Intracranial mass [Unknown]
  - Encephalopathy [Unknown]
  - Dyspnoea [Unknown]
  - Pancreatitis acute [Unknown]
  - Coronary artery insufficiency [Unknown]
  - Extremity necrosis [Unknown]
  - Ileal perforation [Unknown]
  - Tumour lysis syndrome [Unknown]
  - Infusion related reaction [Unknown]
  - Back pain [Unknown]
  - Insomnia [Unknown]
  - Bronchitis [Unknown]
  - Arthralgia [Unknown]
  - Asthenia [Unknown]
  - Cataract [Unknown]
  - Headache [Unknown]
  - Oedema peripheral [Unknown]
  - Peripheral sensory neuropathy [Unknown]
  - Muscle spasms [Unknown]
  - Pain in extremity [Unknown]
  - Constipation [Unknown]
  - Fall [Unknown]
  - Pyrexia [Unknown]
  - Influenza [Unknown]
  - Fatigue [Unknown]
  - Nasopharyngitis [Unknown]
  - Nausea [Unknown]
  - Cough [Unknown]
  - Adverse event [Unknown]
  - Bronchitis [Unknown]
  - Vomiting [Unknown]
